FAERS Safety Report 5065784-0 (Version None)
Quarter: 2006Q3

REPORT INFORMATION
  Report Type: 
  Country: None (occurrence: None)
  Receive Date: 20060719
  Receipt Date: 20051013
  Transmission Date: 20061208
  Serious: Yes (Death)
  Sender: FDA-Public Use
  Company Number: 05P-163-0313666-00

PATIENT
  Age: 1 Day
  Sex: 0

DRUGS (6)
  1. NORVIR [Suspect]
     Indication: DRUG EXPOSURE DURING PREGNANCY
  2. LAMIVUDINE [Suspect]
     Indication: DRUG EXPOSURE DURING PREGNANCY
  3. ABACAVIR SULFATE [Suspect]
     Indication: DRUG EXPOSURE DURING PREGNANCY
  4. REYATAZ [Suspect]
     Indication: DRUG EXPOSURE DURING PREGNANCY
  5. SAQUINAVIR MESILATE [Suspect]
     Indication: DRUG EXPOSURE DURING PREGNANCY
  6. TRIZIVIR [Suspect]
     Indication: DRUG EXPOSURE DURING PREGNANCY

REACTIONS (1)
  - DEATH [None]
